FAERS Safety Report 6969868-9 (Version None)
Quarter: 2010Q3

REPORT INFORMATION
  Report Type: 
  Country: None (occurrence: None)
  Receive Date: 20100902
  Receipt Date: 20100825
  Transmission Date: 20110219
  Serious: Yes (Hospitalization)
  Sender: FDA-Public Use
  Company Number: A0877864A

PATIENT
  Age: 52 Year
  Sex: Female

DRUGS (3)
  1. ACETAMINOPHEN, ASPIRIN AND CAFFEINE [Suspect]
     Dosage: ORAL
     Route: 048
  2. METFORMIN HCL [Concomitant]
  3. SIMVASTATIN [Concomitant]

REACTIONS (14)
  - CONDITION AGGRAVATED [None]
  - DRUG DEPENDENCE [None]
  - EATING DISORDER [None]
  - GASTRIC DISORDER [None]
  - GASTRIC ULCER [None]
  - GASTROOESOPHAGEAL REFLUX DISEASE [None]
  - HEADACHE [None]
  - INTESTINAL OBSTRUCTION [None]
  - MALAISE [None]
  - POST GASTRIC SURGERY SYNDROME [None]
  - SCAR [None]
  - THROMBOSIS [None]
  - VOMITING [None]
  - WEIGHT DECREASED [None]
